FAERS Safety Report 7418754-9 (Version None)
Quarter: 2011Q2

REPORT INFORMATION
  Report Type: 
  Country: None (occurrence: None)
  Receive Date: 20110415
  Receipt Date: 20110412
  Transmission Date: 20111010
  Serious: No
  Sender: FDA-Public Use
  Company Number: US-PFIZER INC-2010171770

PATIENT
  Sex: Female

DRUGS (3)
  1. EFFEXOR XR [Suspect]
     Indication: ANXIETY
     Dosage: 37.5 MG, UNK
     Dates: start: 20101001, end: 20101022
  2. EFFEXOR XR [Suspect]
     Dosage: 35 MG, UNK
     Dates: start: 20101001
  3. EFFEXOR XR [Suspect]
     Indication: MENOPAUSE
     Dosage: 37.5 MG, TWO TABLETS
     Route: 048
     Dates: start: 20081027, end: 20101022

REACTIONS (9)
  - FEELING ABNORMAL [None]
  - DIZZINESS [None]
  - HYPOAESTHESIA ORAL [None]
  - TINNITUS [None]
  - HEADACHE [None]
  - NIGHT SWEATS [None]
  - CONFUSIONAL STATE [None]
  - BLOOD PRESSURE INCREASED [None]
  - DRUG WITHDRAWAL SYNDROME [None]
